FAERS Safety Report 13948723 (Version 1)
Quarter: 2017Q3

REPORT INFORMATION
  Report Type: Spontaneous
  Country: DK (occurrence: DK)
  Receive Date: 20170908
  Receipt Date: 20170908
  Transmission Date: 20171128
  Serious: Yes (Life-Threatening, Hospitalization)
  Sender: FDA-Public Use
  Company Number: DK-KRKA, D.D., NOVO MESTO-2025747

PATIENT
  Age: 56 Year
  Sex: Female

DRUGS (1)
  1. ENALAPRIL KRKA [Suspect]
     Active Substance: ENALAPRIL MALEATE
     Indication: HYPERTENSION
     Route: 048
     Dates: end: 20170818

REACTIONS (4)
  - Laryngeal oedema [Recovered/Resolved]
  - Endotracheal intubation [Recovered/Resolved]
  - Angioedema [Recovered/Resolved]
  - Dyspnoea [Recovered/Resolved]

NARRATIVE: CASE EVENT DATE: 20170817
